FAERS Safety Report 13899919 (Version 1)
Quarter: 2017Q3

REPORT INFORMATION
  Report Type: Spontaneous
  Country: US (occurrence: None)
  Receive Date: 20170824
  Receipt Date: 20170824
  Transmission Date: 20171127
  Serious: Yes (Hospitalization)
  Sender: FDA-Public Use
  Company Number: None

PATIENT
  Age: 69 Year
  Sex: Male
  Weight: 82.56 kg

DRUGS (7)
  1. LISINOPRIL. [Concomitant]
     Active Substance: LISINOPRIL
  2. PROLIXIN [Concomitant]
     Active Substance: FLUPHENAZINE HYDROCHLORIDE
  3. ABILIFY [Suspect]
     Active Substance: ARIPIPRAZOLE
     Indication: MENTAL DISORDER
     Route: 048
     Dates: start: 201311
  4. ASPIRIN. [Concomitant]
     Active Substance: ASPIRIN
  5. ABILIFY [Suspect]
     Active Substance: ARIPIPRAZOLE
     Indication: THINKING ABNORMAL
     Route: 048
     Dates: start: 201311
  6. FLOWMAX [Concomitant]
  7. TRADJENTA [Concomitant]
     Active Substance: LINAGLIPTIN

REACTIONS (4)
  - Visual acuity reduced [None]
  - Dementia [None]
  - Dementia Alzheimer^s type [None]
  - Eye pain [None]

NARRATIVE: CASE EVENT DATE: 2014
